FAERS Safety Report 19909680 (Version 1)
Quarter: 2021Q4

REPORT INFORMATION
  Report Type: Spontaneous
  Country: US (occurrence: US)
  Receive Date: 20211002
  Receipt Date: 20211002
  Transmission Date: 20220303
  Serious: No
  Sender: FDA-Public Use
  Company Number: US-JNJFOC-20210950418

PATIENT
  Age: 8 Decade
  Sex: Female

DRUGS (1)
  1. WOMENS ROGAINE UNSCENTED [Suspect]
     Active Substance: MINOXIDIL
     Indication: Alopecia
     Dosage: JUST FOLLOW THE DIRECTIONS AND APPLY THE AREA SHE WANTS TO TREATED
     Route: 061
     Dates: start: 202108

REACTIONS (1)
  - Hair texture abnormal [Unknown]
